FAERS Safety Report 17754970 (Version 2)
Quarter: 2020Q2

REPORT INFORMATION
  Report Type: Spontaneous
  Country: US (occurrence: US)
  Receive Date: 20200507
  Receipt Date: 20200624
  Transmission Date: 20200714
  Serious: Yes (Other)
  Sender: FDA-Public Use
  Company Number: US-ABBVIE-20K-163-3311826-00

PATIENT
  Age: 65 Year
  Sex: Male

DRUGS (2)
  1. XTANDI [Suspect]
     Active Substance: ENZALUTAMIDE
     Indication: PROSTATE CANCER
     Dosage: DO NOT CHEW, OPEN, CRUSH  OR DISSOLVE
     Route: 048
  2. HUMIRA [Suspect]
     Active Substance: ADALIMUMAB
     Indication: PRODUCT USED FOR UNKNOWN INDICATION
     Route: 058

REACTIONS (5)
  - Haematochezia [Unknown]
  - Haemorrhoids [Unknown]
  - Injection site nodule [Recovered/Resolved]
  - Joint stiffness [Unknown]
  - Memory impairment [Unknown]

NARRATIVE: CASE EVENT DATE: 201907
